FAERS Safety Report 4310964-2 (Version None)
Quarter: 2004Q1

REPORT INFORMATION
  Report Type: 
  Country: None (occurrence: None)
  Receive Date: 20040304
  Receipt Date: 20040227
  Transmission Date: 20041129
  Serious: Yes (Death)
  Sender: FDA-Public Use
  Company Number: 200411576US

PATIENT
  Age: 58 Year
  Sex: Male

DRUGS (1)
  1. LOVENOX [Suspect]
     Indication: ABDOMINAL OPERATION
     Route: 058

REACTIONS (4)
  - POST PROCEDURAL COMPLICATION [None]
  - PULMONARY EMBOLISM [None]
  - SURGICAL PROCEDURE REPEATED [None]
  - WOUND EVISCERATION [None]
